FAERS Safety Report 23854283 (Version 1)
Quarter: 2024Q2

REPORT INFORMATION
  Report Type: Spontaneous
  Country: CN (occurrence: CN)
  Receive Date: 20240514
  Receipt Date: 20240514
  Transmission Date: 20240716
  Serious: Yes (Other)
  Sender: FDA-Public Use
  Company Number: CN-PFIZER INC-PV202400061507

PATIENT
  Age: 95 Year
  Sex: Male
  Weight: 56 kg

DRUGS (3)
  1. ZYVOX [Suspect]
     Active Substance: LINEZOLID
     Indication: Therapeutic procedure
     Dosage: 300 ML, 1X/DAY
     Route: 041
     Dates: start: 20240407, end: 20240417
  2. ZYVOX [Suspect]
     Active Substance: LINEZOLID
     Indication: Pneumonia
  3. ZYVOX [Suspect]
     Active Substance: LINEZOLID
     Indication: Sepsis

REACTIONS (4)
  - Haematuria [Recovering/Resolving]
  - Platelet count decreased [Recovering/Resolving]
  - Coagulation time prolonged [Recovering/Resolving]
  - Off label use [Unknown]

NARRATIVE: CASE EVENT DATE: 20240407
